FAERS Safety Report 7898254-2 (Version None)
Quarter: 2011Q4

REPORT INFORMATION
  Report Type: 
  Country: None (occurrence: None)
  Receive Date: 20111107
  Receipt Date: 20111103
  Transmission Date: 20120403
  Serious: Yes (Other)
  Sender: FDA-Public Use
  Company Number: GB-GLAXOSMITHKLINE-B0686227A

PATIENT
  Age: 37 Year
  Sex: Male

DRUGS (3)
  1. PROZAC [Concomitant]
     Route: 065
  2. PAROXETINE HCL [Suspect]
     Indication: DEPRESSION
     Route: 048
  3. SLEEPING TABLETS [Concomitant]

REACTIONS (7)
  - DRUG WITHDRAWAL SYNDROME [None]
  - DRUG INEFFECTIVE [None]
  - SUICIDAL IDEATION [None]
  - INSOMNIA [None]
  - AGGRESSION [None]
  - AGITATION [None]
  - MEMORY IMPAIRMENT [None]
